FAERS Safety Report 19840145 (Version 1)
Quarter: 2021Q3

REPORT INFORMATION
  Report Type: Spontaneous
  Country: US (occurrence: US)
  Receive Date: 20210914
  Receipt Date: 20210914
  Transmission Date: 20211014
  Serious: No
  Sender: FDA-Public Use
  Company Number: None

PATIENT
  Age: 35 Year
  Sex: Male

DRUGS (1)
  1. NALTREXONE (NALTREXONE HCL 50MG TAB (1/2 TAB)) [Suspect]
     Active Substance: NALTREXONE HYDROCHLORIDE
     Route: 048
     Dates: start: 20210506, end: 20210610

REACTIONS (2)
  - Vomiting [None]
  - Nausea [None]

NARRATIVE: CASE EVENT DATE: 20210610
